FAERS Safety Report 7125488-7 (Version None)
Quarter: 2010Q4

REPORT INFORMATION
  Report Type: 
  Country: None (occurrence: None)
  Receive Date: 20101129
  Receipt Date: 20101112
  Transmission Date: 20110411
  Serious: Yes (Disabling)
  Sender: FDA-Public Use
  Company Number: IT-CELGENEUS-083-21880-10111729

PATIENT
  Sex: Female
  Weight: 52 kg

DRUGS (9)
  1. REVLIMID [Suspect]
     Indication: MULTIPLE MYELOMA
     Route: 048
     Dates: start: 20100129
  2. REVLIMID [Suspect]
     Route: 048
     Dates: start: 20100826, end: 20100916
  3. SOLDESAM [Suspect]
     Indication: ANTIINFLAMMATORY THERAPY
     Route: 048
     Dates: start: 20100129, end: 20100830
  4. SOLDESAM [Suspect]
     Indication: IMMUNOSUPPRESSION
  5. SOLDESAM [Suspect]
     Indication: MULTIPLE MYELOMA
  6. PREGABALIN [Concomitant]
     Route: 048
     Dates: start: 20100504, end: 20101122
  7. PREGABALIN [Concomitant]
     Indication: CONVULSION
  8. FUROSEMIDE [Concomitant]
     Route: 048
     Dates: start: 20100601
  9. CLEXANE [Concomitant]
     Indication: THROMBOSIS
     Route: 058
     Dates: start: 20100320, end: 20101122

REACTIONS (1)
  - PARTIAL SEIZURES [None]
